FAERS Safety Report 8339908-3 (Version None)
Quarter: 2012Q2

REPORT INFORMATION
  Report Type: 
  Country: None (occurrence: None)
  Receive Date: 20120507
  Receipt Date: 20090209
  Transmission Date: 20120825
  Serious: No
  Sender: FDA-Public Use
  Company Number: US-TEVA-2008000936

PATIENT
  Sex: Male
  Weight: 70.37 kg

DRUGS (7)
  1. DIOVAN [Concomitant]
  2. METFORMIN HCL [Concomitant]
  3. TREANDA [Suspect]
     Indication: CHRONIC LYMPHOCYTIC LEUKAEMIA
     Route: 042
     Dates: start: 20080820, end: 20081113
  4. HYDROCORTISONE [Concomitant]
     Indication: PREMEDICATION
     Route: 042
  5. ACYCLOVIR [Concomitant]
  6. LIPITOR [Concomitant]
  7. METOPROLOL TARTRATE [Concomitant]

REACTIONS (4)
  - RASH ERYTHEMATOUS [None]
  - PRURITUS [None]
  - ERYTHEMA [None]
  - CHILLS [None]
